FAERS Safety Report 14511157 (Version 1)
Quarter: 2018Q1

REPORT INFORMATION
  Report Type: Spontaneous
  Country: IL (occurrence: IL)
  Receive Date: 20180209
  Receipt Date: 20180209
  Transmission Date: 20180509
  Serious: Yes (Hospitalization)
  Sender: FDA-Public Use
  Company Number: IL-SA-2018SA031357

PATIENT
  Age: 52 Year
  Sex: Male

DRUGS (1)
  1. AMARYL [Suspect]
     Active Substance: GLIMEPIRIDE
     Indication: DIABETES MELLITUS
     Route: 048
     Dates: start: 20140730

REACTIONS (5)
  - Head injury [Unknown]
  - Fall [Unknown]
  - Cerebral haemorrhage [Unknown]
  - Dizziness [Unknown]
  - Hypoglycaemia [Unknown]
